FAERS Safety Report 18233821 (Version 3)
Quarter: 2020Q4

REPORT INFORMATION
  Report Type: Report from Study
  Country: US (occurrence: US)
  Receive Date: 20200904
  Receipt Date: 20201030
  Transmission Date: 20210113
  Serious: Yes (Other)
  Sender: FDA-Public Use
  Company Number: US-BIOGEN-2020BI00918300

PATIENT
  Sex: Female

DRUGS (6)
  1. SERTRALINE HCL [Concomitant]
     Active Substance: SERTRALINE HYDROCHLORIDE
     Indication: ANXIETY
     Route: 048
     Dates: start: 20200826
  2. TECFIDERA [Suspect]
     Active Substance: DIMETHYL FUMARATE
     Indication: MULTIPLE SCLEROSIS
     Route: 048
     Dates: start: 20200612
  3. ALBUTEROL SULFATE. [Concomitant]
     Active Substance: ALBUTEROL SULFATE
     Indication: PRODUCT USED FOR UNKNOWN INDICATION
     Dosage: 108(90 BASE) MCG/ACT, 1 PUFF AS NEEDED, INHALATION, EVERY 4 HOURS
     Route: 048
  4. TECFIDERA [Suspect]
     Active Substance: DIMETHYL FUMARATE
     Route: 065
     Dates: start: 202007
  5. TECFIDERA [Suspect]
     Active Substance: DIMETHYL FUMARATE
     Route: 065
     Dates: start: 20200612
  6. ZOLOFT [Suspect]
     Active Substance: SERTRALINE HYDROCHLORIDE
     Indication: ANXIETY
     Route: 065

REACTIONS (9)
  - Drug interaction [Unknown]
  - Migraine [Unknown]
  - Dysphoria [Unknown]
  - Suicidal ideation [Recovered/Resolved]
  - Stress [Unknown]
  - Depression [Recovered/Resolved]
  - Adjustment disorder with anxiety [Unknown]
  - Hypoaesthesia [Not Recovered/Not Resolved]
  - Procedural pain [Not Recovered/Not Resolved]
